FAERS Safety Report 4451261-4 (Version None)
Quarter: 2004Q3

REPORT INFORMATION
  Report Type: 
  Country: None (occurrence: None)
  Receive Date: 20040915
  Receipt Date: 20040915
  Transmission Date: 20050211
  Serious: Yes (Hospitalization)
  Sender: FDA-Public Use
  Company Number: None

PATIENT
  Age: 28 Year
  Sex: Female
  Weight: 68.0396 kg

DRUGS (4)
  1. NICOTINE [Suspect]
     Indication: SMOKING CESSATION THERAPY
     Dosage: 21 MG QD TRANSDERMAL
     Route: 062
     Dates: start: 20040913, end: 20040914
  2. PAXIL [Concomitant]
  3. HYDROCORTISONE [Concomitant]
  4. MULTI VIT [Concomitant]

REACTIONS (1)
  - ANAPHYLACTIC REACTION [None]
